FAERS Safety Report 8577601-2 (Version None)
Quarter: 2012Q3

REPORT INFORMATION
  Report Type: 
  Country: None (occurrence: None)
  Receive Date: 20120807
  Receipt Date: 20120803
  Transmission Date: 20120928
  Serious: Yes (Hospitalization, Other)
  Sender: FDA-Public Use
  Company Number: GB-ROCHE-1054673

PATIENT
  Sex: Male

DRUGS (7)
  1. LIPITOR [Concomitant]
  2. BISOPROLOL FUMARATE [Concomitant]
  3. FOLIC ACID [Concomitant]
     Dosage: ONCE A DAY 6 OF 7 DAYS
  4. ASPIRIN [Concomitant]
  5. METHOTREXATE [Concomitant]
  6. RAMIPRIL [Concomitant]
  7. MABTHERA [Suspect]
     Indication: RHEUMATOID ARTHRITIS
     Route: 065
     Dates: start: 20090709

REACTIONS (3)
  - KNEE ARTHROPLASTY [None]
  - MYOCARDIAL INFARCTION [None]
  - MYOCARDIAL ISCHAEMIA [None]
